FAERS Safety Report 8373027-5 (Version None)
Quarter: 2012Q2

REPORT INFORMATION
  Report Type: 
  Country: None (occurrence: None)
  Receive Date: 20120521
  Receipt Date: 20120511
  Transmission Date: 20120825
  Serious: Yes (Life-Threatening, Hospitalization, Other)
  Sender: FDA-Public Use
  Company Number: JP-GENZYME-THYM-1002958

PATIENT
  Sex: Male
  Weight: 15 kg

DRUGS (19)
  1. THYMOGLOBULIN [Suspect]
     Indication: BONE MARROW CONDITIONING REGIMEN
     Dosage: 35 MG, QD
     Route: 042
     Dates: start: 20110224, end: 20110227
  2. CYCLOPHOSPHAMIDE [Concomitant]
     Indication: INFANTILE GENETIC AGRANULOCYTOSIS
     Dosage: UNK
     Dates: start: 20110224, end: 20110227
  3. ACYCLOVIR [Concomitant]
     Indication: ANTIVIRAL PROPHYLAXIS
     Dosage: UNK
     Dates: start: 20110226, end: 20110330
  4. MELPHALAN [Concomitant]
     Indication: INFANTILE GENETIC AGRANULOCYTOSIS
     Dosage: UNK
     Dates: start: 20110228, end: 20110228
  5. MICAFUNGIN SODIUM [Concomitant]
     Indication: ANTIFUNGAL PROPHYLAXIS
     Dosage: UNK
     Dates: start: 20110224, end: 20110330
  6. DALTEPARIN SODIUM [Concomitant]
     Indication: PROPHYLAXIS
     Dosage: UNK
     Dates: start: 20110223, end: 20110406
  7. METHYLPREDNISOLONE SODIUM SUCCINATE [Concomitant]
     Indication: ALLERGY PROPHYLAXIS
     Dosage: UNK
     Dates: start: 20110224, end: 20110228
  8. SULFAMETHOPRIM [Concomitant]
     Indication: ANTIFUNGAL PROPHYLAXIS
     Dosage: UNK
  9. POLYMYCIN B SULFATE [Concomitant]
     Indication: INFECTION PROPHYLAXIS
     Dosage: UNK
     Dates: start: 20110223, end: 20110323
  10. METHOTREXATE [Concomitant]
     Indication: PROPHYLAXIS AGAINST GRAFT VERSUS HOST DISEASE
     Dosage: UNK
     Dates: start: 20110303, end: 20110308
  11. TACROLIMUS [Concomitant]
     Indication: PROPHYLAXIS AGAINST GRAFT VERSUS HOST DISEASE
     Dosage: UNK
     Dates: start: 20110301, end: 20110809
  12. CEFPIROME SULFATE [Concomitant]
     Indication: PROPHYLAXIS
     Dosage: UNK
     Dates: start: 20110211, end: 20110222
  13. FLUDARABINE PHOSPHATE [Concomitant]
     Indication: INFANTILE GENETIC AGRANULOCYTOSIS
     Dosage: UNK
     Dates: start: 20110224, end: 20110228
  14. FAMOTIDINE [Concomitant]
     Indication: PROPHYLAXIS
     Dosage: UNK
     Dates: start: 20110221, end: 20110330
  15. ACYCLOVIR [Concomitant]
     Dosage: UNK
     Dates: start: 20110331, end: 20110713
  16. PIPERACILLIN SODIUM [Concomitant]
     Indication: ANTIBIOTIC PROPHYLAXIS
     Dosage: UNK
     Dates: start: 20110223, end: 20110322
  17. MESNA [Concomitant]
     Indication: HAEMORRHAGE PROPHYLAXIS
     Dosage: UNK
     Dates: start: 20110224, end: 20110227
  18. ITRACONAZOLE [Concomitant]
     Indication: ANTIFUNGAL PROPHYLAXIS
     Dosage: UNK
     Dates: start: 20110331
  19. URSODIOL [Concomitant]
     Indication: PROPHYLAXIS
     Dosage: UNK
     Dates: start: 20110222, end: 20110330

REACTIONS (4)
  - ACUTE GRAFT VERSUS HOST DISEASE IN SKIN [None]
  - CYTOMEGALOVIRUS HEPATITIS [None]
  - CYTOMEGALOVIRUS TEST POSITIVE [None]
  - NEUTROPENIA [None]
